FAERS Safety Report 23353078 (Version 1)
Quarter: 2023Q4

REPORT INFORMATION
  Report Type: Spontaneous
  Country: US (occurrence: US)
  Receive Date: 20231230
  Receipt Date: 20231230
  Transmission Date: 20240109
  Serious: No
  Sender: FDA-Public Use
  Company Number: US-ABBVIE-5564084

PATIENT

DRUGS (1)
  1. VRAYLAR [Suspect]
     Active Substance: CARIPRAZINE
     Indication: Bipolar I disorder
     Dosage: LAST THERAPY ADMIN DATE: 2021
     Route: 048

REACTIONS (3)
  - Ligament disorder [Unknown]
  - Diabetes mellitus [Unknown]
  - Blood pressure abnormal [Unknown]
